FAERS Safety Report 7506203-1 (Version None)
Quarter: 2011Q2

REPORT INFORMATION
  Report Type: 
  Country: None (occurrence: None)
  Receive Date: 20110526
  Receipt Date: 20110519
  Transmission Date: 20111010
  Serious: Yes (Hospitalization)
  Sender: FDA-Public Use
  Company Number: FR-TEVA-283171ISR

PATIENT
  Sex: Male
  Weight: 61 kg

DRUGS (31)
  1. LENALIDOMIDE [Suspect]
     Route: 048
     Dates: start: 20100415, end: 20100504
  2. OXYCODONE HYDROCHLORIDE [Concomitant]
     Dosage: 80 MILLIGRAM;
     Route: 048
     Dates: start: 20100406
  3. ONDANSETRON HYDROCHLORIDE [Concomitant]
     Dosage: 16 MILLIGRAM;
  4. PROPOFAN [Concomitant]
     Indication: BONE PAIN
     Dosage: 16 TABLET;
     Dates: start: 20080101, end: 20100406
  5. GINKOR PROCTO [Concomitant]
     Indication: VENOUS INSUFFICIENCY
     Dosage: 4 TABLET;
     Route: 048
     Dates: start: 20080101, end: 20100406
  6. FUROSEMIDE [Concomitant]
     Route: 048
     Dates: start: 20100408, end: 20100629
  7. PERINDOPRIL ERBUMINE [Concomitant]
     Indication: CONGESTIVE CARDIOMYOPATHY
     Dosage: 5 MILLIGRAM;
     Route: 048
     Dates: start: 20090706
  8. TEMAZEPAM [Concomitant]
     Dosage: 4 TABLET;
     Route: 048
     Dates: start: 20090205, end: 20100406
  9. DEXAMETHASONE [Suspect]
     Dates: start: 20100526
  10. BACTRIM [Concomitant]
     Dates: start: 20100126
  11. ESOMEPRAZOLE MAGNESIUM [Concomitant]
     Dates: start: 20090122
  12. PANTOPRAZOLE [Concomitant]
     Indication: GASTROOESOPHAGEAL REFLUX PROPHYLAXIS
     Dosage: 20 MILLIGRAM;
     Route: 048
     Dates: start: 20070926
  13. GABAPENTIN [Concomitant]
     Indication: NEUROPATHY PERIPHERAL
     Dosage: 300 MILLIGRAM;
     Route: 048
     Dates: start: 20091217, end: 20100406
  14. LENALIDOMIDE [Suspect]
     Route: 048
     Dates: start: 20100526
  15. ALLOPURINOL [Concomitant]
     Dates: start: 20100115
  16. COLD CREAM [Concomitant]
  17. PREGABALIN [Concomitant]
     Indication: NEUROPATHY PERIPHERAL
     Dosage: 200 MILLIGRAM;
     Route: 048
     Dates: start: 20100406
  18. TAMSULOSIN HCL [Concomitant]
     Dosage: .4 DOSAGE FORMS;
  19. DEXAMETHASONE [Suspect]
     Indication: MULTIPLE MYELOMA
     Dates: start: 20100126
  20. DEXAMETHASONE [Suspect]
     Dates: start: 20100420, end: 20100504
  21. LENALIDOMIDE [Suspect]
     Indication: MULTIPLE MYELOMA
     Route: 048
     Dates: start: 20100126
  22. VALACICLOVIR [Concomitant]
     Dosage: 2000 MILLIGRAM;
     Route: 048
     Dates: start: 20090122, end: 20100720
  23. ACETYLSALICYLATE LYSINE [Concomitant]
     Indication: CEREBROVASCULAR ACCIDENT PROPHYLAXIS
     Dosage: 75 MILLIGRAM;
     Route: 048
     Dates: start: 20030101
  24. OXYCODONE HYDROCHLORIDE [Concomitant]
     Indication: BONE PAIN
     Dates: start: 20100406
  25. BETAMETHASONE VALERATE [Concomitant]
  26. MACROGOL [Concomitant]
     Indication: CONSTIPATION
     Route: 048
     Dates: start: 20090205
  27. PHENOXYMETHYLPENICILLIN [Concomitant]
     Indication: INFECTION PROPHYLAXIS
     Dosage: 4 IU (INTERNATIONAL UNIT);
     Route: 048
     Dates: start: 20090122
  28. FUROSEMIDE [Concomitant]
     Indication: CONGESTIVE CARDIOMYOPATHY
     Dosage: 60 MILLIGRAM;
     Route: 048
     Dates: start: 20100218, end: 20100405
  29. FUROSEMIDE [Concomitant]
     Dosage: 80 MILLIGRAM;
     Route: 042
     Dates: start: 20100406, end: 20100407
  30. MORPHINE SULFATE [Concomitant]
     Indication: BONE PAIN
     Dosage: 120 MILLIGRAM;
     Route: 048
     Dates: start: 20090305
  31. LAMALINE [Concomitant]
     Dosage: 18 DOSAGE FORMS;

REACTIONS (2)
  - PULMONARY EMBOLISM [None]
  - DEEP VEIN THROMBOSIS [None]
